FAERS Safety Report 20419029 (Version 1)
Quarter: 2022Q1

REPORT INFORMATION
  Report Type: Spontaneous
  Country: CA (occurrence: CA)
  Receive Date: 20220203
  Receipt Date: 20220203
  Transmission Date: 20220423
  Serious: Yes (Death, Other)
  Sender: FDA-Public Use
  Company Number: CA-AUROBINDO-AUR-APL-2022-002837

PATIENT
  Sex: Male

DRUGS (18)
  1. TRANEXAMIC ACID [Suspect]
     Active Substance: TRANEXAMIC ACID
     Indication: Subdural haematoma evacuation
     Dosage: UNK
     Route: 065
  2. TRANEXAMIC ACID [Suspect]
     Active Substance: TRANEXAMIC ACID
     Indication: Craniectomy
  3. CALCIUM CHLORIDE [Suspect]
     Active Substance: CALCIUM CHLORIDE
     Indication: Subdural haematoma evacuation
     Dosage: UNK
     Route: 065
  4. CALCIUM CHLORIDE [Suspect]
     Active Substance: CALCIUM CHLORIDE
     Indication: Craniectomy
  5. CEFAZOLIN SODIUM [Suspect]
     Active Substance: CEFAZOLIN SODIUM
     Indication: Subdural haematoma evacuation
     Dosage: UNK
     Route: 065
  6. CEFAZOLIN SODIUM [Suspect]
     Active Substance: CEFAZOLIN SODIUM
     Indication: Craniectomy
  7. DILANTIN [Suspect]
     Active Substance: PHENYTOIN
     Indication: Subdural haematoma evacuation
     Dosage: UNK
     Route: 065
  8. DILANTIN [Suspect]
     Active Substance: PHENYTOIN
     Indication: Craniectomy
  9. FENTANYL [Suspect]
     Active Substance: FENTANYL
     Indication: Subdural haematoma evacuation
     Dosage: UNK
     Route: 065
  10. FENTANYL [Suspect]
     Active Substance: FENTANYL
     Indication: Craniectomy
  11. MIDAZOLAM [Suspect]
     Active Substance: MIDAZOLAM
     Indication: Subdural haematoma evacuation
     Dosage: UNK
     Route: 065
  12. MIDAZOLAM [Suspect]
     Active Substance: MIDAZOLAM
     Indication: Craniectomy
  13. NOREPINEPHRINE BITARTRATE [Suspect]
     Active Substance: NOREPINEPHRINE BITARTRATE
     Indication: Subdural haematoma evacuation
     Dosage: UNK
     Route: 065
  14. NOREPINEPHRINE BITARTRATE [Suspect]
     Active Substance: NOREPINEPHRINE BITARTRATE
     Indication: Craniectomy
  15. OSMITROL [Suspect]
     Active Substance: MANNITOL
     Indication: Subdural haematoma evacuation
     Dosage: UNK
     Route: 065
  16. OSMITROL [Suspect]
     Active Substance: MANNITOL
     Indication: Craniectomy
  17. PROPOFOL [Suspect]
     Active Substance: PROPOFOL
     Indication: Subdural haematoma evacuation
     Dosage: UNK
     Route: 065
  18. PROPOFOL [Suspect]
     Active Substance: PROPOFOL
     Indication: Craniectomy

REACTIONS (7)
  - Death [Fatal]
  - Dehydration [Fatal]
  - Erythema [Fatal]
  - Hypotension [Fatal]
  - Oedema [Fatal]
  - Rash [Fatal]
  - Urticaria [Fatal]
